FAERS Safety Report 5211945-7 (Version None)
Quarter: 2007Q1

REPORT INFORMATION
  Report Type: 
  Country: None (occurrence: None)
  Receive Date: 20070116
  Receipt Date: 20070116
  Transmission Date: 20070707
  Serious: No
  Sender: FDA-Public Use
  Company Number: None

PATIENT
  Sex: Female
  Weight: 59 kg

DRUGS (1)
  1. ACYCLOVIR [Suspect]
     Indication: PNEUMONIA HERPES VIRAL
     Dosage: 600 MG EVERY 8 HOURS IV
     Route: 042
     Dates: start: 20051003, end: 20061017

REACTIONS (1)
  - BLOOD CREATININE INCREASED [None]
